FAERS Safety Report 9449161 (Version 1)
Quarter: 2013Q3

REPORT INFORMATION
  Report Type: Spontaneous
  Country: US (occurrence: None)
  Receive Date: 20130806
  Receipt Date: 20130806
  Transmission Date: 20140515
  Serious: Yes (Hospitalization)
  Sender: FDA-Public Use
  Company Number: 2013STPI000298

PATIENT
  Age: 78 Year
  Sex: Female
  Weight: 72.6 kg

DRUGS (3)
  1. MATULANE (PROCARBAZINE HYDROCHLORIDE) CAPSULE, 50MG [Suspect]
     Indication: BRAIN NEOPLASM MALIGNANT
     Route: 048
     Dates: start: 20130704
  2. AMLODIPINE  BESYLATE (AMLODIPINE BESILATE) [Concomitant]
  3. OMEPRAZOLE ACID REUCER (OMEPRAZOLE) [Concomitant]

REACTIONS (2)
  - Thrombosis [None]
  - Nonspecific reaction [None]
